FAERS Safety Report 8802092 (Version 2)
Quarter: 2015Q1

REPORT INFORMATION
  Report Type: Report from Study
  Country: US (occurrence: US)
  Receive Date: 20120921
  Receipt Date: 20150314
  Transmission Date: 20150721
  Serious: Yes (Death)
  Sender: FDA-Public Use
  Company Number: US-ROCHE-1104596

PATIENT
  Sex: Female

DRUGS (19)
  1. TAXOTERE [Concomitant]
     Active Substance: DOCETAXEL
  2. TAXOL [Concomitant]
     Active Substance: PACLITAXEL
     Route: 042
  3. XELODA [Suspect]
     Active Substance: CAPECITABINE
     Indication: PRODUCT USED FOR UNKNOWN INDICATION
     Route: 065
  4. AVASTIN [Suspect]
     Active Substance: BEVACIZUMAB
     Indication: OFF LABEL USE
  5. KYTRIL [Concomitant]
     Active Substance: GRANISETRON HYDROCHLORIDE
     Route: 042
  6. TYLENOL [Concomitant]
     Active Substance: ACETAMINOPHEN
     Route: 065
  7. CAMPTOSAR [Concomitant]
     Active Substance: IRINOTECAN HYDROCHLORIDE
     Route: 065
  8. ARANESP [Concomitant]
     Active Substance: DARBEPOETIN ALFA
     Route: 065
  9. NEULASTA [Concomitant]
     Active Substance: PEGFILGRASTIM
     Route: 058
  10. KYTRIL [Concomitant]
     Active Substance: GRANISETRON HYDROCHLORIDE
     Route: 042
  11. POTASSIUM CHLORIDE. [Concomitant]
     Active Substance: POTASSIUM CHLORIDE
     Route: 065
  12. HEPARIN [Concomitant]
     Active Substance: HEPARIN SODIUM
     Dosage: 1000 U
     Route: 065
  13. XELODA [Suspect]
     Active Substance: CAPECITABINE
     Route: 065
     Dates: start: 20050817
  14. ARANESP [Concomitant]
     Active Substance: DARBEPOETIN ALFA
     Route: 065
  15. AVASTIN [Suspect]
     Active Substance: BEVACIZUMAB
     Indication: BREAST CANCER FEMALE
     Route: 042
     Dates: start: 20051026
  16. ZOMETA [Concomitant]
     Active Substance: ZOLEDRONIC ACID
     Route: 065
  17. LASIX [Concomitant]
     Active Substance: FUROSEMIDE
     Route: 065
  18. ZANTAC [Concomitant]
     Active Substance: RANITIDINE HYDROCHLORIDE
     Route: 065
  19. ATROPINE [Concomitant]
     Active Substance: ATROPINE
     Route: 065

REACTIONS (20)
  - Asthenia [Unknown]
  - Nausea [Unknown]
  - Dehydration [Unknown]
  - Oedema peripheral [Unknown]
  - Skin exfoliation [Unknown]
  - Dry skin [Unknown]
  - Off label use [Unknown]
  - Death [Fatal]
  - Diarrhoea [Unknown]
  - Decreased appetite [Unknown]
  - Lymphoedema [Unknown]
  - Cough [Unknown]
  - Dyspnoea [Unknown]
  - Erythema [Unknown]
  - Fall [Unknown]
  - Onychomadesis [Unknown]
  - Fluid retention [Unknown]
  - Arthralgia [Unknown]
  - Vomiting [Unknown]
  - Headache [Unknown]
